FAERS Safety Report 12909788 (Version 1)
Quarter: 2016Q4

REPORT INFORMATION
  Report Type: Spontaneous
  Country: JP (occurrence: JP)
  Receive Date: 20161104
  Receipt Date: 20161104
  Transmission Date: 20170207
  Serious: Yes (Other)
  Sender: FDA-Public Use
  Company Number: PHHY2016JP150713

PATIENT
  Age: 85 Year
  Sex: Female

DRUGS (3)
  1. SOLDEM 1 [Concomitant]
     Active Substance: DEXTROSE\SODIUM CHLORIDE\SODIUM LACTATE
     Indication: PRODUCT USED FOR UNKNOWN INDICATION
     Dosage: UNK
     Route: 065
  2. RANITIDINE HYDROCHLORIDE. [Concomitant]
     Active Substance: RANITIDINE HYDROCHLORIDE
     Indication: PRODUCT USED FOR UNKNOWN INDICATION
     Dosage: UNK
     Route: 065
  3. RIVASTACH [Suspect]
     Active Substance: RIVASTIGMINE
     Indication: DEMENTIA ALZHEIMER^S TYPE
     Dosage: 1.9 MG, QD PATCH 2.5 (CM2)/4.5 MG RIVASTIGMINE BASE
     Route: 062

REACTIONS (1)
  - Depressed level of consciousness [Unknown]
